FAERS Safety Report 22353979 (Version 1)
Quarter: 2023Q2

REPORT INFORMATION
  Report Type: Report from Study
  Country: BR (occurrence: BR)
  Receive Date: 20230523
  Receipt Date: 20230523
  Transmission Date: 20230722
  Serious: Yes (Hospitalization, Other)
  Sender: FDA-Public Use
  Company Number: BR-CELLTRION INC.-2023BR010568

PATIENT

DRUGS (5)
  1. INFLIXIMAB [Suspect]
     Active Substance: INFLIXIMAB
     Indication: Rheumatoid arthritis
     Dosage: 2 AMPOULES EVERY 2 MONTHS
     Route: 042
     Dates: start: 20220718
  2. INFLIXIMAB [Suspect]
     Active Substance: INFLIXIMAB
     Dosage: 2 AMPOULES EVERY 2 MONTHS
     Route: 042
     Dates: start: 20220721
  3. INFLIXIMAB [Suspect]
     Active Substance: INFLIXIMAB
     Dosage: 2 AMPOULES EVERY 2 MONTHS
     Route: 042
     Dates: start: 20230119
  4. AMIODARONE [Concomitant]
     Active Substance: AMIODARONE
     Dosage: 1 CAPSULE DAY
     Route: 048
  5. METHOTREXATE SODIUM [Concomitant]
     Active Substance: METHOTREXATE SODIUM
     Indication: Rheumatoid arthritis
     Dosage: 6 ML 1X PER WEEK
     Route: 058

REACTIONS (2)
  - Pneumonia [Recovering/Resolving]
  - Intentional dose omission [Recovering/Resolving]

NARRATIVE: CASE EVENT DATE: 20230311
